FAERS Safety Report 4985012-1 (Version None)
Quarter: 2006Q1

REPORT INFORMATION
  Report Type: 
  Country: None (occurrence: None)
  Receive Date: 20060309
  Receipt Date: 20050811
  Transmission Date: 20060701
  Serious: Yes (Other)
  Sender: FDA-Public Use
  Company Number: 414259

PATIENT
  Sex: Male
  Weight: 2.8 kg

DRUGS (3)
  1. ACCUTANE [Suspect]
     Indication: ACNE
     Dosage: 40 MG DAILY ORAL
     Route: 048
     Dates: start: 19991206, end: 20000115
  2. MINOCYCLINE HCL [Concomitant]
  3. ORTHO TRI-CYCLEN [Concomitant]

REACTIONS (1)
  - SICK RELATIVE [None]
